FAERS Safety Report 24623223 (Version 1)
Quarter: 2024Q4

REPORT INFORMATION
  Report Type: Spontaneous
  Country: US (occurrence: US)
  Receive Date: 20241115
  Receipt Date: 20241115
  Transmission Date: 20250115
  Serious: Yes (Other)
  Sender: NOVARTIS
  Company Number: US-002147023-NVSC2024US218896

PATIENT
  Sex: Male
  Weight: 106 kg

DRUGS (2)
  1. SCEMBLIX [Suspect]
     Active Substance: ASCIMINIB HYDROCHLORIDE
     Indication: Chronic myeloid leukaemia
     Dosage: 40 MG, BID
     Route: 048
     Dates: start: 20241016, end: 20241101
  2. SCEMBLIX [Suspect]
     Active Substance: ASCIMINIB HYDROCHLORIDE
     Indication: Philadelphia chromosome test

REACTIONS (6)
  - Renal failure [Recovering/Resolving]
  - Gout [Recovering/Resolving]
  - Arrhythmia [Recovering/Resolving]
  - Cardiac disorder [Recovering/Resolving]
  - Joint swelling [Recovering/Resolving]
  - Hyperuricaemia [Recovering/Resolving]
